FAERS Safety Report 14195444 (Version 1)
Quarter: 2017Q4

REPORT INFORMATION
  Report Type: Spontaneous
  Country: US (occurrence: US)
  Receive Date: 20171116
  Receipt Date: 20171116
  Transmission Date: 20180321
  Serious: Yes (Other)
  Sender: FDA-Public Use
  Company Number: US-SAOL THERAPEUTICS-2017SAO01769

PATIENT
  Sex: Female
  Weight: 35.83 kg

DRUGS (1)
  1. LIORESAL [Suspect]
     Active Substance: BACLOFEN
     Dosage: 944.2 ?G, \DAY
     Route: 037

REACTIONS (4)
  - Spinal operation [Unknown]
  - Spine malformation [Unknown]
  - Infection [Unknown]
  - Muscle spasticity [Recovered/Resolved]
